FAERS Safety Report 9250857 (Version 1)
Quarter: 2013Q1

REPORT INFORMATION
  Report Type: Spontaneous
  Country: US (occurrence: None)
  Receive Date: 20130305
  Receipt Date: 20130305
  Transmission Date: 20140127
  Serious: Yes (Life-Threatening, Hospitalization, Disabling, Other)
  Sender: FDA-Public Use
  Company Number: 163-21880-12082510

PATIENT
  Age: 75 Year
  Sex: Male

DRUGS (1)
  1. REVLIMID [Suspect]
     Indication: NON-HODGKIN^S LYMPHOMA
     Dosage: 21 IN 21 DAY
     Route: 048
     Dates: start: 20120810, end: 20120819

REACTIONS (5)
  - Platelet count decreased [None]
  - White blood cell count decreased [None]
  - Confusional state [None]
  - Fatigue [None]
  - Decreased appetite [None]
